FAERS Safety Report 6861035-2 (Version None)
Quarter: 2010Q3

REPORT INFORMATION
  Report Type: 
  Country: None (occurrence: None)
  Receive Date: 20100720
  Receipt Date: 20100714
  Transmission Date: 20110219
  Serious: Yes (Death, Other)
  Sender: FDA-Public Use
  Company Number: JP-PFIZER INC-2010087425

PATIENT
  Age: 83 Year
  Sex: Female

DRUGS (4)
  1. SOLU-MEDROL [Suspect]
     Indication: EOSINOPHILIC LEUKAEMIA
     Dosage: 500 MG, 1X/DAY
     Route: 042
     Dates: start: 20081122, end: 20081125
  2. IMATINIB [Interacting]
     Indication: EOSINOPHILIC LEUKAEMIA
     Dosage: 100 MG, 1X/DAY
     Dates: start: 20081123
  3. PREDNISOLONE [Concomitant]
     Indication: EOSINOPHILIC LEUKAEMIA
     Dosage: 30 MG, 1X/DAY
     Dates: start: 20081114
  4. HYDROXYUREA [Concomitant]
     Indication: EOSINOPHILIC LEUKAEMIA
     Dosage: 2000 MG, 1X/DAY
     Dates: start: 20081117

REACTIONS (5)
  - DISSEMINATED INTRAVASCULAR COAGULATION [None]
  - DRUG INTERACTION [None]
  - LEUKOPENIA [None]
  - RENAL FAILURE [None]
  - TUMOUR LYSIS SYNDROME [None]
